FAERS Safety Report 5737171-0 (Version None)
Quarter: 2008Q2

REPORT INFORMATION
  Report Type: 
  Country: None (occurrence: None)
  Receive Date: 20080513
  Receipt Date: 20080513
  Transmission Date: 20081010
  Serious: Yes (Other)
  Sender: FDA-Public Use
  Company Number: None

PATIENT
  Sex: Female
  Weight: 61.2356 kg

DRUGS (1)
  1. ORTHO TRI-CYCLEN [Suspect]
     Indication: MENSTRUATION IRREGULAR
     Dosage: ONE PILL DAILY PO
     Route: 048
     Dates: start: 19990301, end: 20080329

REACTIONS (2)
  - INTESTINAL ISCHAEMIA [None]
  - RECTAL HAEMORRHAGE [None]
